FAERS Safety Report 9305628 (Version 3)
Quarter: 2013Q2

REPORT INFORMATION
  Report Type: Report from Study
  Country: ES (occurrence: ES)
  Receive Date: 20130523
  Receipt Date: 20130625
  Transmission Date: 20140414
  Serious: Yes (Life-Threatening, Hospitalization)
  Sender: FDA-Public Use
  Company Number: ES-TEVA-407198USA

PATIENT
  Age: 61 Year
  Sex: Female
  Weight: 100 kg

DRUGS (4)
  1. BENDAMUSTINE [Suspect]
     Indication: PLASMA CELL MYELOMA
     Route: 042
     Dates: start: 20120508
  2. BENDAMUSTINE [Suspect]
     Route: 042
     Dates: start: 20130219
  3. VELCADE [Suspect]
     Indication: PLASMA CELL MYELOMA
     Route: 042
     Dates: start: 20120508, end: 20130305
  4. PREDNISONE [Suspect]
     Indication: PLASMA CELL MYELOMA
     Route: 048
     Dates: start: 20120508, end: 20130215

REACTIONS (2)
  - Caecitis [Recovered/Resolved]
  - Septic shock [Recovered/Resolved]
